FAERS Safety Report 8518994 (Version 3)
Quarter: 2012Q4

REPORT INFORMATION
  Report Type: 
  Country: US (occurrence: US)
  Receive Date: 20120418
  Receipt Date: 20120917
  Transmission Date: 20130627
  Serious: Yes (Hospitalization)
  Sender: FDA-Public Use
  Company Number: US-BAYER-2012-036823

PATIENT
  Age: 22 Year
  Sex: Female
  Weight: 68.93 kg

DRUGS (18)
  1. YASMIN [Suspect]
     Indication: CONTRACEPTION
     Dosage: UNK
     Dates: start: 200309, end: 200512
  2. ALBUTEROL [Concomitant]
     Indication: COUGH
     Dosage: UNK UNK, PRN
     Dates: start: 20050906
  3. ROBITUSSIN DM [Concomitant]
     Indication: COUGH
     Dosage: UNK
     Dates: start: 20050906
  4. ZITHROMAX Z-PACK [Concomitant]
     Indication: COUGH
     Dosage: UNK
     Dates: start: 20050906
  5. DIFLUCAN [Concomitant]
     Indication: FUNGAL INFECTION
     Dosage: one
     Route: 048
     Dates: start: 20051013
  6. ENTEX [Concomitant]
     Indication: UPPER RESPIRATORY TRACT INFECTION
     Dosage: UNK, daily
     Dates: start: 20051013
  7. MOTRIN [Concomitant]
     Indication: UPPER RESPIRATORY TRACT INFECTION
     Dosage: 600 mg, TID
     Dates: start: 20051013
  8. ADVAIR [Concomitant]
     Indication: ASTHMA
     Dosage: 250/50 one puff, BID
     Dates: start: 20051118
  9. ADVAIR [Concomitant]
     Indication: ASTHMA
     Dosage: UNK
     Dates: start: 20051210
  10. ALLEGRA [Concomitant]
     Indication: ASTHMA
     Dosage: Once daily
     Dates: start: 20051118
  11. COMBIVENT [Concomitant]
     Indication: ASTHMA
     Dosage: Approximately four times daily
     Dates: start: 20051118
  12. ATENOLOL [Concomitant]
     Indication: HYPERTENSION
     Dosage: 25 mg, UNK
     Dates: start: 20051118
  13. ATENOLOL [Concomitant]
     Indication: HYPERTENSION
     Dosage: UNK
     Dates: start: 20051210
  14. ATENOLOL [Concomitant]
     Indication: HYPERTENSION
  15. LEVAQUIN [Concomitant]
     Indication: BRONCHITIS
     Dosage: 500 mg, daily for 7 days
     Dates: start: 20051118
  16. PREDNISONE [Concomitant]
     Indication: BRONCHITIS
     Dosage: 40 mg, daily to be tapered and discontinued over two weeks
     Dates: start: 20051118
  17. NASONEX [Concomitant]
     Dosage: UNK
     Dates: start: 20051210
  18. FLONASE [Concomitant]
     Dosage: UNK
     Dates: start: 20051210

REACTIONS (5)
  - Pulmonary embolism [None]
  - Pulmonary infarction [None]
  - Hypertension [None]
  - High risk pregnancy [None]
  - Dyspnoea [None]
